FAERS Safety Report 5724594-9 (Version None)
Quarter: 2008Q2

REPORT INFORMATION
  Report Type: 
  Country: None (occurrence: None)
  Receive Date: 20080501
  Receipt Date: 20080429
  Transmission Date: 20081010
  Serious: Yes (Hospitalization)
  Sender: FDA-Public Use
  Company Number: CN-JNJFOC-20080407544

PATIENT
  Age: 3 Year
  Sex: Male

DRUGS (1)
  1. VERMOX [Suspect]
     Indication: PARASITIC GASTROENTERITIS
     Route: 048

REACTIONS (2)
  - FACE OEDEMA [None]
  - RASH PRURITIC [None]
